FAERS Safety Report 15600103 (Version 3)
Quarter: 2018Q4

REPORT INFORMATION
  Report Type: Spontaneous
  Country: DE (occurrence: DE)
  Receive Date: 20181109
  Receipt Date: 20181221
  Transmission Date: 20190205
  Serious: Yes (Other)
  Sender: FDA-Public Use
  Company Number: DE-009507513-1811DEU002422

PATIENT
  Age: 81 Year
  Sex: Male

DRUGS (21)
  1. SIMVASTATIN. [Suspect]
     Active Substance: SIMVASTATIN
     Indication: PRODUCT USED FOR UNKNOWN INDICATION
     Dosage: 40 MILLIGRAM, QD (IN THE EVENING)
     Route: 065
     Dates: start: 2014
  2. TORSEMIDE. [Suspect]
     Active Substance: TORSEMIDE
     Indication: PRODUCT USED FOR UNKNOWN INDICATION
     Dosage: 40 MILLIGRAM, QD (20 IN THE MORNING, 20 AT NOON)
     Route: 065
     Dates: start: 2014
  3. LANTUS [Suspect]
     Active Substance: INSULIN GLARGINE
     Indication: PRODUCT USED FOR UNKNOWN INDICATION
     Dosage: 24 INTERNATIONAL UNIT, QD; TO THE NIGHT
     Route: 065
     Dates: start: 2018
  4. VALSARTAN. [Suspect]
     Active Substance: VALSARTAN
     Indication: PRODUCT USED FOR UNKNOWN INDICATION
     Dosage: 160 MILLIGRAM, QD
     Route: 065
     Dates: start: 2014
  5. AMLODIPINE [Suspect]
     Active Substance: AMLODIPINE BESYLATE
     Indication: PRODUCT USED FOR UNKNOWN INDICATION
     Dosage: 5 MILLIGRAM, Q12H; INTAKE IN THE MORNING AND IN THE EVENING
     Route: 065
     Dates: start: 2014
  6. VALSARTAN. [Suspect]
     Active Substance: VALSARTAN
     Dosage: UNK
     Route: 065
     Dates: start: 20180903, end: 20181009
  7. NOVORAPID [Suspect]
     Active Substance: INSULIN ASPART
     Indication: PRODUCT USED FOR UNKNOWN INDICATION
     Dosage: IN THE MORNING 24, AT NOON 18, IN THE EVENING 20
     Route: 065
     Dates: start: 2018
  8. AMLODIPINE [Suspect]
     Active Substance: AMLODIPINE BESYLATE
     Dosage: 5 MILLIGRAM, QPM (IN THE EVENING)
     Route: 065
     Dates: start: 2018
  9. TAMSULOSIN HYDROCHLORIDE. [Suspect]
     Active Substance: TAMSULOSIN HYDROCHLORIDE
     Indication: PRODUCT USED FOR UNKNOWN INDICATION
     Dosage: 0.4 MILLIGRAM, QD (REPORTED AS 0.4 IN THE EVENING)
     Route: 065
     Dates: start: 2014
  10. TORSEMIDE. [Suspect]
     Active Substance: TORSEMIDE
     Dosage: 20 MILLIGRAM, QD;1-1-0
     Dates: start: 2012
  11. NOVORAPID [Suspect]
     Active Substance: INSULIN ASPART
     Dosage: IN THE MORNING: 24, NOON: 18, IN THE EVENING: 20
     Route: 065
     Dates: start: 2014
  12. PANTOPRAZOLE [Suspect]
     Active Substance: PANTOPRAZOLE
     Indication: PROPHYLAXIS AGAINST GASTROINTESTINAL ULCER
     Dosage: 40 MILLIGRAM, QAM; (IN THE MORNING)
     Route: 065
     Dates: start: 2018
  13. NOVAMINSULFON [Suspect]
     Active Substance: METAMIZOLE
     Indication: PRODUCT USED FOR UNKNOWN INDICATION
     Dosage: AS NEEDED 2-3 X DAILY 20-30 DROPS
     Route: 065
     Dates: start: 2014
  14. CALCITRIOL. [Concomitant]
     Active Substance: CALCITRIOL
     Indication: PRODUCT USED FOR UNKNOWN INDICATION
     Dosage: 0.25 MILLIGRAM, QD
     Route: 065
     Dates: start: 2014
  15. ASS 100 [Suspect]
     Active Substance: ASPIRIN
     Indication: PRODUCT USED FOR UNKNOWN INDICATION
     Dosage: 100 MILLIGRAM, QD; 1-0-0
     Route: 065
     Dates: start: 2014
  16. NOVORAPID [Suspect]
     Active Substance: INSULIN ASPART
     Dosage: MORNING, NOON AND IN THE MORNING, AT NOON AND IN THE EVENING BETWEEN 8 AND 40 IU BEFORE THE MEAL
     Route: 065
     Dates: start: 2012
  17. ALLOPURINOL. [Suspect]
     Active Substance: ALLOPURINOL
     Dosage: 300 MILLIGRAM, QD (IN THE MORNING)
     Route: 065
     Dates: start: 2014
  18. LANTUS [Suspect]
     Active Substance: INSULIN GLARGINE
     Dosage: 20 IU INTERNATIONAL UNIT(S), QD; 20 TO THE NIGHT
     Route: 065
     Dates: start: 2014
  19. ENALAPRIL [Concomitant]
     Active Substance: ENALAPRIL
     Indication: PRODUCT USED FOR UNKNOWN INDICATION
     Dosage: UNK
     Route: 065
  20. CANDESARTAN ZENTIVA [Concomitant]
     Indication: PRODUCT USED FOR UNKNOWN INDICATION
     Route: 065
  21. ALLOPURINOL. [Suspect]
     Active Substance: ALLOPURINOL
     Indication: PRODUCT USED FOR UNKNOWN INDICATION
     Dosage: 100 MILLIGRAM, QD (IN THE MORNING)
     Route: 065
     Dates: start: 2018

REACTIONS (14)
  - Spinal pain [Unknown]
  - Dyspnoea [Unknown]
  - Rectal tenesmus [Unknown]
  - Chest discomfort [Unknown]
  - Dyspnoea exertional [Unknown]
  - Muscle spasms [Unknown]
  - Asthenia [Unknown]
  - Morning sickness [Unknown]
  - Blood glucose increased [Unknown]
  - Peripheral swelling [Unknown]
  - Myalgia [Unknown]
  - Skin haemorrhage [Unknown]
  - Injection site swelling [Unknown]
  - Pelvic pain [Unknown]

NARRATIVE: CASE EVENT DATE: 201809
